FAERS Safety Report 5449042-8 (Version None)
Quarter: 2007Q3

REPORT INFORMATION
  Report Type: 
  Country: None (occurrence: None)
  Receive Date: 20070911
  Receipt Date: 20070831
  Transmission Date: 20080115
  Serious: Yes (Hospitalization)
  Sender: FDA-Public Use
  Company Number: DE-ASTRAZENECA-2007PK01846

PATIENT
  Age: 15112 Day
  Sex: Female
  Weight: 68 kg

DRUGS (3)
  1. NEXIUM [Suspect]
     Indication: GASTRITIS
     Route: 042
     Dates: start: 20070825
  2. E153 [Concomitant]
     Dosage: 250 ML
     Route: 042
     Dates: start: 20070825
  3. MINISISTON [Concomitant]
     Indication: ORAL CONTRACEPTION

REACTIONS (3)
  - FEELING HOT [None]
  - PALPITATIONS [None]
  - PHARMACEUTICAL PRODUCT COMPLAINT [None]
